FAERS Safety Report 8459511 (Version 2)
Quarter: 2012Q4

REPORT INFORMATION
  Report Type: 
  Country: US (occurrence: US)
  Receive Date: 20120314
  Receipt Date: 20120912
  Transmission Date: 20130627
  Serious: No
  Sender: FDA-Public Use
  Company Number: US-ASTRAZENECA-2011SE11814

PATIENT
  Age: 53 Year
  Sex: Male

DRUGS (4)
  1. TOPROL XL [Suspect]
     Route: 048
  2. SEROQUEL [Suspect]
     Route: 048
  3. CRESTOR [Suspect]
     Route: 048
  4. TRICOR [Suspect]
     Route: 065

REACTIONS (3)
  - Muscle fatigue [Unknown]
  - Weight decreased [Unknown]
  - Loss of consciousness [Unknown]
